FAERS Safety Report 8113741-X (Version None)
Quarter: 2012Q1

REPORT INFORMATION
  Report Type: 
  Country: None (occurrence: None)
  Receive Date: 20120203
  Receipt Date: 20120123
  Transmission Date: 20120608
  Serious: Yes (Hospitalization)
  Sender: FDA-Public Use
  Company Number: PH-UCBSA-050356

PATIENT
  Sex: Female

DRUGS (2)
  1. DILTIAZEM HYDROCHLORIDE [Concomitant]
     Dosage: UNKNOWN DOSE
  2. ISOSORBIDE DINITRATE [Suspect]
     Indication: MYOCARDIAL ISCHAEMIA
     Dosage: UNKNOWN DOSE
     Dates: start: 20120101

REACTIONS (3)
  - HEADACHE [None]
  - NECK PAIN [None]
  - MUSCULOSKELETAL PAIN [None]
